FAERS Safety Report 5237998-8 (Version None)
Quarter: 2007Q1

REPORT INFORMATION
  Report Type: 
  Country: None (occurrence: None)
  Receive Date: 20070214
  Receipt Date: 20070202
  Transmission Date: 20070707
  Serious: Yes (Hospitalization)
  Sender: FDA-Public Use
  Company Number: GB-PFIZER INC-2006140615

PATIENT
  Age: 44 Year
  Sex: Female

DRUGS (2)
  1. PREDNISOLONE [Suspect]
     Indication: ANAEMIA HAEMOLYTIC AUTOIMMUNE
     Route: 048
  2. METHYLPREDNISOLONE 16MG TAB [Suspect]
     Indication: ANAEMIA HAEMOLYTIC AUTOIMMUNE
     Route: 042

REACTIONS (4)
  - DISORIENTATION [None]
  - FACIAL PALSY [None]
  - HEMIPARESIS [None]
  - NOCARDIOSIS [None]
